FAERS Safety Report 18919591 (Version 1)
Quarter: 2021Q1

REPORT INFORMATION
  Report Type: Spontaneous
  Country: JP (occurrence: JP)
  Receive Date: 20210221
  Receipt Date: 20210221
  Transmission Date: 20210420
  Serious: Yes (Other)
  Sender: FDA-Public Use
  Company Number: NVSC2021JP038912

PATIENT
  Age: 79 Year
  Sex: Male

DRUGS (1)
  1. DEXAMETHASONE. [Suspect]
     Active Substance: DEXAMETHASONE
     Indication: TRAUMATIC LUNG INJURY
     Dosage: 6.6 MG, QD
     Route: 065

REACTIONS (2)
  - Pulmonary oedema [Unknown]
  - Product use in unapproved indication [Unknown]
